FAERS Safety Report 24340147 (Version 2)
Quarter: 2024Q4

REPORT INFORMATION
  Report Type: Spontaneous
  Country: BR (occurrence: BR)
  Receive Date: 20240919
  Receipt Date: 20241001
  Transmission Date: 20250114
  Serious: Yes (Hospitalization)
  Sender: AMERICAN REGENT
  Company Number: BR-AMERICAN REGENT INC-2024003533

PATIENT
  Age: 31 Year
  Sex: Female
  Weight: 62 kg

DRUGS (1)
  1. FERINJECT [Suspect]
     Active Substance: FERRIC CARBOXYMALTOSE
     Indication: Product used for unknown indication
     Dosage: 500 MILLIGRAM (10 ML) DILUTED IN 250 ML SALINE SOLUTION (500 MG)
     Dates: start: 20240905, end: 20240905

REACTIONS (3)
  - Skin plaque [Recovered/Resolved]
  - Pruritus [Recovered/Resolved]
  - Product preparation issue [Unknown]

NARRATIVE: CASE EVENT DATE: 20240905
